FAERS Safety Report 6047147-4 (Version None)
Quarter: 2009Q1

REPORT INFORMATION
  Report Type: 
  Country: None (occurrence: None)
  Receive Date: 20090122
  Receipt Date: 20090115
  Transmission Date: 20090719
  Serious: Yes (Other)
  Sender: FDA-Public Use
  Company Number: PHHY2008GB30140

PATIENT
  Sex: Male

DRUGS (1)
  1. LAMISIL [Suspect]
     Indication: BODY TINEA
     Dosage: 250MG/DAY
     Route: 065
     Dates: start: 20081009

REACTIONS (8)
  - ANAEMIA [None]
  - HAEMOGLOBIN [None]
  - LEUKAEMIA [None]
  - NEUTROPHIL COUNT DECREASED [None]
  - PANCYTOPENIA [None]
  - PLATELET COUNT ABNORMAL [None]
  - RASH [None]
  - WHITE BLOOD CELL COUNT DECREASED [None]
